FAERS Safety Report 17657220 (Version 2)
Quarter: 2020Q3

REPORT INFORMATION
  Report Type: Spontaneous
  Country: DE (occurrence: DE)
  Receive Date: 20200410
  Receipt Date: 20200707
  Transmission Date: 20201102
  Serious: Yes (Hospitalization)
  Sender: FDA-Public Use
  Company Number: DE-BAUSCH-BL-2020-009914

PATIENT
  Age: 14 Year
  Sex: Male
  Weight: 38 kg

DRUGS (11)
  1. AMLODIPIN [Concomitant]
     Active Substance: AMLODIPINE BESYLATE
     Indication: HYPERTENSION
     Dosage: 2 SEPARATED DOSES
     Route: 048
     Dates: start: 20170901
  2. BICANORM [Concomitant]
     Active Substance: SODIUM BICARBONATE
     Indication: RENAL TUBULAR ACIDOSIS
     Dosage: 3 SEPARATED DOSES
     Route: 048
     Dates: start: 201009
  3. FERRO SANOL [Concomitant]
     Active Substance: FERROUS GLYCINE SULFATE
     Indication: IRON DEFICIENCY
     Route: 048
     Dates: start: 201303
  4. EINSALPHA [Concomitant]
     Indication: CHRONIC KIDNEY DISEASE-MINERAL AND BONE DISORDER
     Route: 048
     Dates: start: 20100630
  5. TACROLIMUS. [Suspect]
     Active Substance: TACROLIMUS
     Indication: IMMUNOSUPPRESSION
     Dosage: 2 SEPARATED DOSES
     Route: 048
     Dates: start: 201703, end: 20190701
  6. TACROLIMUS. [Suspect]
     Active Substance: TACROLIMUS
     Dosage: REDUCED DOSE
     Route: 048
  7. REDUCTO?SPEZIAL [Concomitant]
     Indication: CHRONIC KIDNEY DISEASE-MINERAL AND BONE DISORDER
     Dosage: 602MG/360MG, SINCE AT LEAST /JUN/2019
     Route: 048
  8. MYCOPHENOLATMOFETIL [Suspect]
     Active Substance: MYCOPHENOLATE MOFETIL
     Indication: IMMUNOSUPPRESSION
     Dosage: 2 SEPARATED DOSES
     Route: 048
     Dates: start: 201011
  9. VIGANTOL OEL [Concomitant]
     Indication: VITAMIN D DEFICIENCY
     Dosage: 20000 IE/ML
     Route: 048
     Dates: start: 201006
  10. MAGNESIUM VERLA N [Concomitant]
     Active Substance: MAGNESIUM
     Indication: BLOOD MAGNESIUM ABNORMAL
     Dosage: 2 SEPARATED DOSES
     Route: 048
     Dates: start: 20180205
  11. PREDNISOLON [Suspect]
     Active Substance: PREDNISOLONE
     Indication: IMMUNOSUPPRESSION
     Route: 048
     Dates: start: 201101

REACTIONS (3)
  - Enteritis [Recovered/Resolved]
  - Decreased appetite [Recovered/Resolved]
  - Abdominal pain [Recovered/Resolved]

NARRATIVE: CASE EVENT DATE: 20190630
